FAERS Safety Report 7494642-7 (Version None)
Quarter: 2011Q2

REPORT INFORMATION
  Report Type: 
  Country: None (occurrence: None)
  Receive Date: 20110520
  Receipt Date: 20110518
  Transmission Date: 20111010
  Serious: Yes (Other)
  Sender: FDA-Public Use
  Company Number: US-PFIZER INC-2011107322

PATIENT
  Sex: Female
  Weight: 63.5 kg

DRUGS (2)
  1. EFFEXOR XR [Suspect]
     Indication: DEMENTIA
  2. EFFEXOR XR [Suspect]
     Indication: DEMENTIA ALZHEIMER'S TYPE
     Dosage: UNK
     Route: 048
     Dates: start: 20100301, end: 20110513

REACTIONS (4)
  - RASH GENERALISED [None]
  - URTICARIA [None]
  - CONFUSIONAL STATE [None]
  - MALAISE [None]
